FAERS Safety Report 24800104 (Version 1)
Quarter: 2025Q1

REPORT INFORMATION
  Report Type: Spontaneous
  Country: PT (occurrence: PT)
  Receive Date: 20250102
  Receipt Date: 20250102
  Transmission Date: 20250409
  Serious: Yes (Other)
  Sender: NOVARTIS
  Company Number: None

PATIENT
  Age: 42 Year
  Sex: Female

DRUGS (4)
  1. CYCLOSPORINE [Suspect]
     Active Substance: CYCLOSPORINE
     Indication: Generalised pustular psoriasis
     Dosage: (5 MG/KG/DAY) WAS STARTED AS RESCUE THERAPY
     Route: 065
  2. METHOTREXATE [Suspect]
     Active Substance: METHOTREXATE
     Indication: Subcorneal pustular dermatosis
     Route: 065
  3. CEFTRIAXONE [Concomitant]
     Active Substance: CEFTRIAXONE
     Indication: Generalised pustular psoriasis
     Route: 065
  4. CLINDAMYCIN [Concomitant]
     Active Substance: CLINDAMYCIN
     Indication: Generalised pustular psoriasis
     Route: 065

REACTIONS (3)
  - Acute kidney injury [Unknown]
  - Pustular psoriasis [Unknown]
  - Therapy non-responder [Unknown]
